FAERS Safety Report 6033782-6 (Version None)
Quarter: 2009Q1

REPORT INFORMATION
  Report Type: 
  Country: None (occurrence: None)
  Receive Date: 20090112
  Receipt Date: 20090105
  Transmission Date: 20090719
  Serious: Yes (Hospitalization, Other)
  Sender: FDA-Public Use
  Company Number: GB-RANBAXY-2009RR-20300

PATIENT
  Age: 37 Year
  Sex: Male

DRUGS (4)
  1. IBUPROFEN [Suspect]
     Indication: PAIN
     Dosage: 400 MG, TID
     Route: 048
     Dates: start: 20081103, end: 20081127
  2. ANADIN EXTRA [Suspect]
     Indication: PAIN
     Dosage: 2 DF, Q4H
     Route: 048
     Dates: start: 20081103, end: 20081127
  3. ACETAMINOPHEN W/ CODEINE [Concomitant]
     Indication: PAIN
     Dosage: 1 DF, Q4H
     Route: 048
     Dates: start: 20081027, end: 20081101
  4. ACETAMINOPHEN [Concomitant]
     Indication: PAIN
     Dosage: 1 G, QID
     Route: 048
     Dates: start: 20081020, end: 20081026

REACTIONS (1)
  - DUODENAL ULCER PERFORATION [None]
